FAERS Safety Report 4444269-6 (Version None)
Quarter: 2004Q3

REPORT INFORMATION
  Report Type: 
  Country: None (occurrence: None)
  Receive Date: 20040729
  Receipt Date: 20031015
  Transmission Date: 20050211
  Serious: Yes (Death)
  Sender: FDA-Public Use
  Company Number: USA-2003-0010312

PATIENT
  Age: 49 Year
  Sex: Male

DRUGS (7)
  1. DIGOXIN [Suspect]
  2. ETHANOL (ETHANOL) [Suspect]
  3. PROPOXYPHENE HCL [Suspect]
  4. AMITRIPTYLINE HCL [Suspect]
  5. CYCLOBENZAPINE (CYCLOBENZAPRINE) [Suspect]
  6. DIPHENHYDRAMINE HCL [Suspect]
  7. NICOTINE [Suspect]

REACTIONS (2)
  - ACCIDENTAL OVERDOSE [None]
  - MULTIPLE DRUG OVERDOSE [None]
